FAERS Safety Report 26046676 (Version 1)
Quarter: 2025Q4

REPORT INFORMATION
  Report Type: Spontaneous
  Country: US (occurrence: US)
  Receive Date: 20251114
  Receipt Date: 20251114
  Transmission Date: 20260118
  Serious: No
  Sender: OPTINOSE INC
  Company Number: US-OPTINOSE US, INC.-2025OPT000061

PATIENT
  Sex: Female

DRUGS (3)
  1. XHANCE [Suspect]
     Active Substance: FLUTICASONE PROPIONATE
     Indication: Hypersensitivity
     Dosage: UNK UNK
     Route: 045
  2. DEVICE [Suspect]
     Active Substance: DEVICE
     Indication: Hypersensitivity
     Dosage: UNK UNK
  3. SODIUM CHLORIDE [Concomitant]
     Active Substance: SODIUM CHLORIDE
     Indication: Product used for unknown indication
     Dosage: UNK UNK

REACTIONS (3)
  - Scab [Unknown]
  - Epistaxis [Unknown]
  - Off label use [Unknown]
